FAERS Safety Report 4766100-1 (Version None)
Quarter: 2005Q3

REPORT INFORMATION
  Report Type: 
  Country: None (occurrence: None)
  Receive Date: 20050906
  Receipt Date: 20050824
  Transmission Date: 20060218
  Serious: Yes (Disabling)
  Sender: FDA-Public Use
  Company Number: 217001

PATIENT
  Age: 41 Year
  Sex: Female
  Weight: 42.2 kg

DRUGS (8)
  1. XOLAIR [Suspect]
     Indication: ASTHMA
     Dosage: 300 MG, Q4W, SUBCUTANEOUS
     Route: 058
     Dates: start: 20040101, end: 20050325
  2. ALLERGY IMMUNOTHERAPY (ALLERGENIC EXTRACTS) [Concomitant]
  3. INHALED STEROIDS (STEROID NOS) [Concomitant]
  4. SINGULAIR [Concomitant]
  5. ACYCLOVIR [Concomitant]
  6. ALLEGRA [Concomitant]
  7. ADVAIR (SALMETEROL XINAFOATE, FLUTICASONE PROPIONATE) [Concomitant]
  8. QVAR (BECLOMETHASONE DIPROPIONATE) [Concomitant]

REACTIONS (6)
  - ARTHRITIS [None]
  - FATIGUE [None]
  - JOINT SWELLING [None]
  - SERUM SICKNESS [None]
  - SWELLING FACE [None]
  - URTICARIA [None]
